FAERS Safety Report 9062037 (Version 1)
Quarter: 2013Q1

REPORT INFORMATION
  Report Type: Spontaneous
  Country: US (occurrence: None)
  Receive Date: 20130122
  Receipt Date: 20130122
  Transmission Date: 20140127
  Serious: Yes (Death, Hospitalization)
  Sender: FDA-Public Use
  Company Number: 2013MA000403

PATIENT
  Age: 53 Year
  Sex: Female

DRUGS (4)
  1. KADIAN [Suspect]
     Indication: PRODUCT USED FOR UNKNOWN INDICATION
     Dosage: ; UNK; UNK
  2. CLONAZEPAM [Suspect]
     Indication: PRODUCT USED FOR UNKNOWN INDICATION
     Dosage: ; UNK; UNK
  3. COMPOUND CONTAINING NITRIC ACID, SELENIUM AND COPPER COMPOUNDS [Suspect]
     Indication: PRODUCT USED FOR UNKNOWN INDICATION
     Dosage: ; 6-7 OUNCES;
  4. COCAINE [Suspect]
     Indication: PRODUCT USED FOR UNKNOWN INDICATION
     Dosage: ; UNK; UNK

REACTIONS (12)
  - Abdominal pain [None]
  - Throat irritation [None]
  - Haemoglobin increased [None]
  - Haematocrit increased [None]
  - International normalised ratio increased [None]
  - Cardiac arrest [None]
  - Tracheal injury [None]
  - Gastrointestinal injury [None]
  - Drug abuse [None]
  - Completed suicide [None]
  - Haematemesis [None]
  - Chemical injury [None]
